FAERS Safety Report 17294218 (Version 2)
Quarter: 2020Q2

REPORT INFORMATION
  Report Type: Report from Study
  Country: US (occurrence: US)
  Receive Date: 20200121
  Receipt Date: 20200602
  Transmission Date: 20200713
  Serious: No
  Sender: FDA-Public Use
  Company Number: US-SA-2020SA011774

PATIENT

DRUGS (4)
  1. XOLAIR [Concomitant]
     Active Substance: OMALIZUMAB
  2. DUPILUMAB [Suspect]
     Active Substance: DUPILUMAB
     Indication: DERMATITIS ATOPIC
     Dosage: 600 MG, 1X
     Route: 058
     Dates: start: 20181224, end: 20181224
  3. DUPILUMAB [Suspect]
     Active Substance: DUPILUMAB
     Indication: ASTHMA
  4. DUPILUMAB [Suspect]
     Active Substance: DUPILUMAB
     Indication: ECZEMA
     Dosage: 300 MG, QOW
     Route: 058
     Dates: start: 20190107

REACTIONS (9)
  - Asthma [Unknown]
  - Skin weeping [Unknown]
  - Wheezing [Unknown]
  - Skin haemorrhage [Unknown]
  - Drug ineffective [Unknown]
  - Increased bronchial secretion [Unknown]
  - Dry skin [Unknown]
  - Chest discomfort [Unknown]
  - Skin fissures [Unknown]

NARRATIVE: CASE EVENT DATE: 201903
